FAERS Safety Report 12211827 (Version 3)
Quarter: 2016Q2

REPORT INFORMATION
  Report Type: Spontaneous
  Country: JP (occurrence: JP)
  Receive Date: 20160325
  Receipt Date: 20160429
  Transmission Date: 20160815
  Serious: Yes (Death, Hospitalization, Other)
  Sender: FDA-Public Use
  Company Number: JP-MDT-ADR-2016-00566

PATIENT
  Age: 75 Year
  Sex: Female

DRUGS (4)
  1. GABALON 0.05% [Suspect]
     Active Substance: BACLOFEN
     Dosage: 40 MCG/DAY
     Route: 037
     Dates: start: 20130527, end: 20130618
  2. GABALON [Suspect]
     Active Substance: BACLOFEN
     Dosage: 50 MCG/DAY
     Route: 037
     Dates: start: 20130513, end: 20151119
  3. GABALON 0.05% [Suspect]
     Active Substance: BACLOFEN
     Dosage: 45 MCG/DAY
     Route: 037
     Dates: start: 20130618, end: 20151119
  4. GABALON 0.05% [Suspect]
     Active Substance: BACLOFEN
     Dosage: 45 MCG/DAY
     Route: 037
     Dates: start: 20130517, end: 20130527

REACTIONS (3)
  - Pneumonia [Fatal]
  - Performance status decreased [Fatal]
  - Condition aggravated [Fatal]

NARRATIVE: CASE EVENT DATE: 201404
